FAERS Safety Report 9963390 (Version 1)
Quarter: 2014Q1

REPORT INFORMATION
  Report Type: Report from Study
  Country: US (occurrence: US)
  Receive Date: 20140305
  Receipt Date: 20140305
  Transmission Date: 20141002
  Serious: No
  Sender: FDA-Public Use
  Company Number: US-ABBVIE-13P-163-1117748-00

PATIENT
  Age: 59 Year
  Sex: Female

DRUGS (9)
  1. HUMIRA [Suspect]
     Indication: PSORIASIS
     Dates: start: 20130405
  2. DILANTIN [Concomitant]
     Indication: EPILEPSY
  3. SINEMET [Concomitant]
     Indication: PARKINSON^S DISEASE
     Dosage: 25/100 MG (2) IN MORNING
  4. BYSTOLIC [Concomitant]
     Indication: HYPERTENSION
  5. LISINOPRIL [Concomitant]
     Indication: HYPERTENSION
  6. SERTRALINE [Concomitant]
     Indication: DEPRESSION
  7. ALBUTEROL/ATROVENT NEBULIZER [Concomitant]
     Indication: ASTHMA
  8. COMBIVENT [Concomitant]
     Indication: ASTHMA
  9. SPIRIVA INHALER [Concomitant]
     Indication: ASTHMA

REACTIONS (1)
  - Injection site vesicles [Recovered/Resolved]
